FAERS Safety Report 22038232 (Version 1)
Quarter: 2023Q1

REPORT INFORMATION
  Report Type: Spontaneous
  Country: FR (occurrence: FR)
  Receive Date: 20230227
  Receipt Date: 20230227
  Transmission Date: 20230418
  Serious: Yes (Hospitalization)
  Sender: FDA-Public Use
  Company Number: FR-AFSSAPS-LL2023000176

PATIENT
  Age: 57 Year
  Sex: Male

DRUGS (7)
  1. NOREPINEPHRINE [Suspect]
     Active Substance: NOREPINEPHRINE
     Indication: Anaesthesia
     Dosage: UNK
     Route: 042
     Dates: start: 20221125
  2. NEBIVOLOL [Suspect]
     Active Substance: NEBIVOLOL
     Indication: Hypertension
     Dosage: 1 DOSAGE FORM
     Route: 042
     Dates: end: 20221125
  3. DEXAMETHASONE [Suspect]
     Active Substance: DEXAMETHASONE
     Indication: Anaesthesia
     Dosage: 4 MILLIGRAM
     Route: 042
     Dates: start: 20221125
  4. REMIFENTANIL [Suspect]
     Active Substance: REMIFENTANIL
     Indication: Anaesthesia
     Dosage: UNK
     Route: 042
     Dates: start: 20221125
  5. LIDOCAINE [Suspect]
     Active Substance: LIDOCAINE
     Indication: Anaesthesia
     Dosage: 90 MILLIGRAM
     Route: 042
     Dates: start: 20221125
  6. KETAMINE [Suspect]
     Active Substance: KETAMINE
     Indication: Anaesthesia
     Dosage: 40 MILLIGRAM
     Route: 042
     Dates: start: 20221125
  7. CEFAZOLIN SODIUM [Suspect]
     Active Substance: CEFAZOLIN SODIUM
     Indication: Anaesthesia
     Dosage: UNK
     Route: 042
     Dates: start: 20221125

REACTIONS (2)
  - Hypotension [Not Recovered/Not Resolved]
  - Bradycardia [Not Recovered/Not Resolved]

NARRATIVE: CASE EVENT DATE: 20221125
